FAERS Safety Report 23644651 (Version 1)
Quarter: 2024Q1

REPORT INFORMATION
  Report Type: Spontaneous
  Country: US (occurrence: US)
  Receive Date: 20240318
  Receipt Date: 20240318
  Transmission Date: 20240410
  Serious: No
  Sender: FDA-Public Use
  Company Number: US-ABBVIE-5675665

PATIENT
  Sex: Female

DRUGS (3)
  1. SKYRIZI [Suspect]
     Active Substance: RISANKIZUMAB-RZAA
     Indication: Crohn^s disease
     Dosage: FORM STRENGTH: 360 MILLIGRAM
     Route: 058
     Dates: start: 202401
  2. VITAMIN B12 [Concomitant]
     Active Substance: CYANOCOBALAMIN
     Indication: Product used for unknown indication
  3. SKYRIZI [Suspect]
     Active Substance: RISANKIZUMAB-RZAA
     Indication: Crohn^s disease
     Dosage: FORM STRENGTH: 600 MILLIGRAM
     Route: 042
     Dates: start: 202309, end: 202311

REACTIONS (7)
  - Migraine [Not Recovered/Not Resolved]
  - Injection site erythema [Unknown]
  - Medication error [Unknown]
  - Injection site pain [Unknown]
  - Injection site bruising [Unknown]
  - Device issue [Not Recovered/Not Resolved]
  - Device alarm issue [Not Recovered/Not Resolved]

NARRATIVE: CASE EVENT DATE: 20230101
